FAERS Safety Report 5637306-4 (Version None)
Quarter: 2008Q1

REPORT INFORMATION
  Report Type: 
  Country: None (occurrence: None)
  Receive Date: 20080220
  Receipt Date: 20071116
  Transmission Date: 20080703
  Serious: Yes (Hospitalization)
  Sender: FDA-Public Use
  Company Number: US021752

PATIENT
  Sex: Female

DRUGS (2)
  1. ACTIQ [Suspect]
     Indication: PAIN
     Dosage: 1600 UG QID BUCCAL
     Route: 002
  2. OXYCONTIN [Suspect]
     Indication: PAIN
     Dosage: 160 MG QD ORAL
     Route: 048

REACTIONS (3)
  - DEPRESSION [None]
  - DRUG ABUSE [None]
  - DRUG DEPENDENCE [None]
